FAERS Safety Report 4471074-7 (Version None)
Quarter: 2004Q4

REPORT INFORMATION
  Report Type: 
  Country: None (occurrence: None)
  Receive Date: 20041011
  Receipt Date: 20040810
  Transmission Date: 20050328
  Serious: Yes (Hospitalization, Other)
  Sender: FDA-Public Use
  Company Number: GBWYE969412AUG04

PATIENT
  Sex: Female

DRUGS (10)
  1. ENBREL [Suspect]
     Indication: DRUG USE FOR UNKNOWN INDICATION
     Dosage: UNKNOWN
     Route: 058
     Dates: start: 20040608, end: 20040802
  2. SALBUTAMOL [Suspect]
     Route: 055
  3. SEREVENT [Concomitant]
  4. FLUTICASONE PROPIONATE [Concomitant]
  5. THEOPHYLLINE [Concomitant]
  6. MONTELUKAST [Concomitant]
  7. PREDNISOLONE [Concomitant]
  8. ALBUTEROL [Concomitant]
  9. PIZOTIFEN [Concomitant]
  10. CALCICHEW [Concomitant]

REACTIONS (2)
  - ASTHMA [None]
  - CONDITION AGGRAVATED [None]
